FAERS Safety Report 19262227 (Version 1)
Quarter: 2021Q2

REPORT INFORMATION
  Report Type: Spontaneous
  Country: US (occurrence: US)
  Receive Date: 20210516
  Receipt Date: 20210516
  Transmission Date: 20210717
  Serious: No
  Sender: FDA-Public Use
  Company Number: US-SA-2021SA156464

PATIENT
  Age: 63 Year
  Sex: Male

DRUGS (1)
  1. DUPIXENT [Suspect]
     Active Substance: DUPILUMAB
     Indication: DERMATITIS ATOPIC
     Dosage: UNK
     Route: 058
     Dates: start: 202101

REACTIONS (9)
  - Dermatitis atopic [Unknown]
  - Erythema [Unknown]
  - Eye pruritus [Unknown]
  - Skin exfoliation [Not Recovered/Not Resolved]
  - Visual impairment [Unknown]
  - Psoriasis [Unknown]
  - Vision blurred [Unknown]
  - Burning sensation [Unknown]
  - Drug ineffective [Unknown]

NARRATIVE: CASE EVENT DATE: 2021
